FAERS Safety Report 10671345 (Version 1)
Quarter: 2014Q4

REPORT INFORMATION
  Report Type: Spontaneous
  Country: US (occurrence: None)
  Receive Date: 20141222
  Receipt Date: 20141222
  Transmission Date: 20150529
  Serious: Yes (Life-Threatening, Hospitalization)
  Sender: FDA-Public Use
  Company Number: None

PATIENT

DRUGS (1)
  1. NEXPLANON [Suspect]
     Active Substance: ETONOGESTREL
     Indication: CONTRACEPTION
     Dosage: ....UNDER THE SKIN
     Dates: start: 20140822, end: 20141209

REACTIONS (9)
  - Loss of consciousness [None]
  - Road traffic accident [None]
  - Headache [None]
  - Vision blurred [None]
  - Gait disturbance [None]
  - Vaginal inflammation [None]
  - Loss of libido [None]
  - Dizziness [None]
  - Feeling abnormal [None]

NARRATIVE: CASE EVENT DATE: 20140822
